FAERS Safety Report 16446510 (Version 1)
Quarter: 2019Q2

REPORT INFORMATION
  Report Type: Spontaneous
  Country: IT (occurrence: IT)
  Receive Date: 20190618
  Receipt Date: 20190618
  Transmission Date: 20190711
  Serious: Yes (Other)
  Sender: FDA-Public Use
  Company Number: IT-PFIZER INC-2019255651

PATIENT
  Age: 21 Year
  Sex: Female

DRUGS (3)
  1. XANAX [Suspect]
     Active Substance: ALPRAZOLAM
     Dosage: 5 MG, SINGLE DOSE (TEN TABLETS 0.5MG)
     Route: 048
     Dates: start: 20190527
  2. MOMENT 200 [Suspect]
     Active Substance: IBUPROFEN
     Dosage: 1000 MG, SINGLE DOSE (FIVE TABLETS 200MG)
     Route: 048
     Dates: start: 20190527
  3. INVEGA [Suspect]
     Active Substance: PALIPERIDONE
     Dosage: 15 MG, SINGLE (FIVE TABLETS 3MG)
     Route: 048
     Dates: start: 20190527

REACTIONS (4)
  - Intentional self-injury [Unknown]
  - Tachycardia [Unknown]
  - Intentional overdose [Unknown]
  - Hypotension [Unknown]

NARRATIVE: CASE EVENT DATE: 20190527
